FAERS Safety Report 25365759 (Version 1)
Quarter: 2025Q2

REPORT INFORMATION
  Report Type: Spontaneous
  Country: US (occurrence: US)
  Receive Date: 20250528
  Receipt Date: 20250528
  Transmission Date: 20250717
  Serious: No
  Sender: ABBVIE
  Company Number: US-ABBVIE-6294490

PATIENT
  Age: 64 Year
  Sex: Male
  Weight: 97.069 kg

DRUGS (5)
  1. INFED [Suspect]
     Active Substance: IRON DEXTRAN
     Indication: Product used for unknown indication
     Route: 042
     Dates: start: 20241219, end: 20241219
  2. CLONAZEPAM [Concomitant]
     Active Substance: CLONAZEPAM
     Indication: Product used for unknown indication
     Route: 048
     Dates: start: 20241030
  3. FINASTERIDE [Concomitant]
     Active Substance: FINASTERIDE
     Indication: Product used for unknown indication
  4. Iron complex [Concomitant]
     Indication: Product used for unknown indication
  5. OMEPRAZOLE [Concomitant]
     Active Substance: OMEPRAZOLE
     Indication: Product used for unknown indication
     Dosage: DOSE FORM- PO?FREQUENCY- EVERY DAY
     Route: 048
     Dates: start: 20240909

REACTIONS (3)
  - Dizziness [Recovered/Resolved]
  - Flushing [Recovered/Resolved]
  - Nausea [Recovered/Resolved]

NARRATIVE: CASE EVENT DATE: 20241219
